FAERS Safety Report 15841153 (Version 1)
Quarter: 2019Q1

REPORT INFORMATION
  Report Type: Spontaneous
  Country: CZ (occurrence: CZ)
  Receive Date: 20190118
  Receipt Date: 20190118
  Transmission Date: 20190417
  Serious: Yes (Hospitalization)
  Sender: FDA-Public Use
  Company Number: CZ-ROCHE-2247459

PATIENT
  Age: 66 Year
  Sex: Male
  Weight: 76 kg

DRUGS (8)
  1. ROACTEMRA [Suspect]
     Active Substance: TOCILIZUMAB
     Indication: RHEUMATOID ARTHRITIS
     Dosage: 600 MG I.V. MONTHLY - LONG-TERM REGULAR MEDICATION
     Route: 042
     Dates: start: 20060126, end: 20180402
  2. LORISTA [Concomitant]
     Active Substance: LOSARTAN POTASSIUM
     Indication: HYPERTENSION
     Route: 048
     Dates: start: 20120829, end: 20181230
  3. METHOTREXATE. [Concomitant]
     Active Substance: METHOTREXATE
     Indication: RHEUMATOID ARTHRITIS
     Dosage: 10 MG WEEKLY - LONG-TERM MEDICATION
     Route: 048
     Dates: start: 20030201, end: 20180410
  4. AULIN [Concomitant]
     Active Substance: NIMESULIDE
     Indication: RHEUMATOID ARTHRITIS
     Dosage: USING IRREGULARLY - ONCE A DAY WHEN THERE IS A JOINT PAIN
     Route: 048
     Dates: start: 20120222, end: 20181201
  5. OMEPRAZOL [Concomitant]
     Active Substance: OMEPRAZOLE
     Indication: RHEUMATOID ARTHRITIS
     Dosage: LONG-TERM PROTECTION OF STOMACH DURING TREATMENT WITH CORTICOIDS AND NESTEROID ANTIRHEUMATICS
     Route: 048
     Dates: start: 20030201, end: 20181230
  6. MEDROL [Concomitant]
     Active Substance: METHYLPREDNISOLONE
     Indication: RHEUMATOID ARTHRITIS
     Route: 048
     Dates: start: 20030201, end: 20181130
  7. TANYZ [Concomitant]
     Active Substance: TAMSULOSIN HYDROCHLORIDE
     Indication: BENIGN PROSTATIC HYPERPLASIA
     Route: 048
     Dates: start: 20111101, end: 20181230
  8. ACIDUM FOLICUM [Concomitant]
     Active Substance: FOLIC ACID
     Indication: RHEUMATOID ARTHRITIS
     Dosage: 10 MG WEEKLY EVERYTIME SECOND DAY AFTER METHOTREXATE
     Route: 048
     Dates: start: 20030202, end: 20180411

REACTIONS (1)
  - Plasma cell myeloma [Recovering/Resolving]

NARRATIVE: CASE EVENT DATE: 20180416
